FAERS Safety Report 10860820 (Version 1)
Quarter: 2015Q1

REPORT INFORMATION
  Report Type: Spontaneous
  Country: US (occurrence: US)
  Receive Date: 20150224
  Receipt Date: 20150224
  Transmission Date: 20150721
  Serious: No
  Sender: FDA-Public Use
  Company Number: US-GLAXOSMITHKLINE-US2015GSK008472

PATIENT
  Age: 16 Year
  Sex: Male

DRUGS (1)
  1. ONDANSETRON [Suspect]
     Active Substance: ONDANSETRON
     Indication: PRODUCT USED FOR UNKNOWN INDICATION
     Dosage: UNK

REACTIONS (6)
  - Hallucination [Unknown]
  - Paraesthesia [Unknown]
  - Agitation [Unknown]
  - Chest pain [Unknown]
  - Visual impairment [Unknown]
  - Adverse drug reaction [Unknown]
